FAERS Safety Report 12878132 (Version 1)
Quarter: 2016Q4

REPORT INFORMATION
  Report Type: Spontaneous
  Country: CN (occurrence: CN)
  Receive Date: 20161024
  Receipt Date: 20161024
  Transmission Date: 20170207
  Serious: Yes (Hospitalization)
  Sender: FDA-Public Use
  Company Number: CN-ABBVIE-16P-035-1761714-00

PATIENT
  Sex: Male

DRUGS (2)
  1. VALPROATE SODIUM/VALPROIC ACID [Suspect]
     Active Substance: VALPROIC ACID
     Indication: EPILEPSY
  2. VALPROATE SODIUM/VALPROIC ACID [Suspect]
     Active Substance: VALPROIC ACID
     Indication: GENERALISED TONIC-CLONIC SEIZURE
     Route: 048
     Dates: start: 20160810, end: 20160817

REACTIONS (1)
  - Hepatic function abnormal [Unknown]

NARRATIVE: CASE EVENT DATE: 20160816
